FAERS Safety Report 12342247 (Version 1)
Quarter: 2016Q2

REPORT INFORMATION
  Report Type: Report from Study
  Country: BR (occurrence: BR)
  Receive Date: 20160506
  Receipt Date: 20160506
  Transmission Date: 20160815
  Serious: Yes (Hospitalization, Other)
  Sender: FDA-Public Use
  Company Number: BR-ABBVIE-15K-020-1359327-00

PATIENT
  Age: 86 Year
  Sex: Female
  Weight: 54 kg

DRUGS (6)
  1. CRESTOR [Concomitant]
     Active Substance: ROSUVASTATIN CALCIUM
     Indication: BLOOD CHOLESTEROL ABNORMAL
     Route: 048
     Dates: start: 201408
  2. HUMIRA [Suspect]
     Active Substance: ADALIMUMAB
     Indication: RHEUMATOID ARTHRITIS
     Route: 058
     Dates: start: 20080101
  3. CRESTOR [Concomitant]
     Active Substance: ROSUVASTATIN CALCIUM
     Indication: PROPHYLAXIS
  4. COUMADIN [Concomitant]
     Active Substance: WARFARIN SODIUM
     Indication: BLOOD DISORDER
     Route: 048
     Dates: start: 201410
  5. COUMADIN [Concomitant]
     Active Substance: WARFARIN SODIUM
     Route: 048
     Dates: start: 201505
  6. CHOLECALCIFEROL [Concomitant]
     Active Substance: CHOLECALCIFEROL
     Indication: VITAMIN SUPPLEMENTATION
     Route: 048
     Dates: start: 201505

REACTIONS (11)
  - Cerebrovascular accident [Recovered/Resolved]
  - Speech disorder [Recovered/Resolved]
  - Pain in extremity [Not Recovered/Not Resolved]
  - Dyspnoea [Recovered/Resolved]
  - Gait disturbance [Recovered/Resolved]
  - Cerebrovascular accident [Recovered/Resolved]
  - Inappropriate schedule of drug administration [Unknown]
  - Crying [Unknown]
  - Cerebrovascular accident [Recovered/Resolved with Sequelae]
  - Apnoea [Recovering/Resolving]
  - Intracardiac thrombus [Unknown]

NARRATIVE: CASE EVENT DATE: 20140614
